FAERS Safety Report 15076640 (Version 4)
Quarter: 2018Q4

REPORT INFORMATION
  Report Type: Report from Study
  Country: GB (occurrence: GB)
  Receive Date: 20180627
  Receipt Date: 20181112
  Transmission Date: 20190204
  Serious: Yes (Hospitalization, Other)
  Sender: FDA-Public Use
  Company Number: GB-BRISTOL-MYERS SQUIBB COMPANY-BMS-2018-008536

PATIENT
  Sex: Male

DRUGS (2)
  1. ABATACEPT [Suspect]
     Active Substance: ABATACEPT
     Indication: RHEUMATOID ARTHRITIS
     Dosage: 125 MG, QWK
     Route: 058
     Dates: start: 20160511
  2. ABATACEPT [Suspect]
     Active Substance: ABATACEPT
     Indication: PRODUCT USED FOR UNKNOWN INDICATION
     Dosage: 125 MG, QWK
     Route: 058
     Dates: start: 20160818

REACTIONS (10)
  - Toothache [Unknown]
  - Urinary tract infection [Unknown]
  - Sinus disorder [Unknown]
  - Fall [Unknown]
  - Nephrolithiasis [Unknown]
  - Sepsis [Unknown]
  - Prostatic disorder [Unknown]
  - Lower respiratory tract infection [Unknown]
  - Adverse event [Unknown]
  - Musculoskeletal stiffness [Unknown]
